FAERS Safety Report 17305230 (Version 3)
Quarter: 2020Q3

REPORT INFORMATION
  Report Type: Spontaneous
  Country: US (occurrence: US)
  Receive Date: 20200123
  Receipt Date: 20200730
  Transmission Date: 20201102
  Serious: No
  Sender: FDA-Public Use
  Company Number: US-PFIZER INC-2019323894

PATIENT
  Age: 84 Year
  Sex: Male

DRUGS (1)
  1. SUTENT [Suspect]
     Active Substance: SUNITINIB MALATE
     Indication: NEUROENDOCRINE CARCINOMA
     Dosage: 12.5 MG, DAILY [TAKE 1 CAP BY MOUTH DAILY]
     Route: 048

REACTIONS (1)
  - Hypertension [Unknown]
